FAERS Safety Report 4455823-X (Version None)
Quarter: 2004Q3

REPORT INFORMATION
  Report Type: 
  Country: None (occurrence: None)
  Receive Date: 20040920
  Receipt Date: 20040907
  Transmission Date: 20050211
  Serious: Yes (Other)
  Sender: FDA-Public Use
  Company Number: SU-2004-002674

PATIENT
  Age: 76 Year
  Sex: Female
  Weight: 56.6996 kg

DRUGS (4)
  1. BENICAR [Suspect]
     Indication: HYPERTENSION
     Dosage: MG PO
     Route: 048
     Dates: end: 20040301
  2. LOZOL [Suspect]
     Dates: end: 20040301
  3. TOPROL-XL [Suspect]
     Dates: end: 20040301
  4. ALPHA-D-GALACTOSIDASE (BEANO) [Suspect]
     Indication: FLATULENCE
     Dates: start: 20010101

REACTIONS (3)
  - ANGIONEUROTIC OEDEMA [None]
  - SWELLING FACE [None]
  - SWOLLEN TONGUE [None]
